FAERS Safety Report 13277866 (Version 1)
Quarter: 2017Q1

REPORT INFORMATION
  Report Type: Spontaneous
  Country: FR (occurrence: FR)
  Receive Date: 20170228
  Receipt Date: 20170228
  Transmission Date: 20170428
  Serious: Yes (Hospitalization)
  Sender: FDA-Public Use
  Company Number: FR-JNJFOC-20170222036

PATIENT
  Age: 30 Year
  Sex: Male

DRUGS (2)
  1. REMICADE [Suspect]
     Active Substance: INFLIXIMAB
     Indication: CROHN^S DISEASE
     Route: 042
     Dates: start: 20150805, end: 20150805
  2. REMICADE [Suspect]
     Active Substance: INFLIXIMAB
     Indication: CROHN^S DISEASE
     Dosage: 5.3571??MG
     Route: 042
     Dates: start: 20060427

REACTIONS (2)
  - Eye infection toxoplasmal [Recovered/Resolved]
  - Viral uveitis [Recovered/Resolved with Sequelae]

NARRATIVE: CASE EVENT DATE: 2013
